FAERS Safety Report 19817411 (Version 1)
Quarter: 2021Q3

REPORT INFORMATION
  Report Type: Spontaneous
  Country: US (occurrence: US)
  Receive Date: 20210910
  Receipt Date: 20210910
  Transmission Date: 20211014
  Serious: Yes (Other)
  Sender: FDA-Public Use
  Company Number: US-MAYNE PHARMA-2020MYN000461

PATIENT

DRUGS (6)
  1. CLONIDINE. [Suspect]
     Active Substance: CLONIDINE
     Indication: BLOOD PRESSURE MANAGEMENT
     Dosage: UNK
  2. MIDODRINE [Suspect]
     Active Substance: MIDODRINE
     Indication: BLOOD PRESSURE MANAGEMENT
     Dosage: UNK
  3. FLORINEF ACETATE [Concomitant]
     Active Substance: FLUDROCORTISONE ACETATE
     Indication: BLOOD PRESSURE MANAGEMENT
     Dosage: UNK
  4. NORTHERA [Suspect]
     Active Substance: DROXIDOPA
     Indication: ORTHOSTATIC HYPOTENSION
     Dosage: 1500 MG, QD
     Dates: start: 20200521, end: 2020
  5. NORTHERA [Suspect]
     Active Substance: DROXIDOPA
     Indication: AUTONOMIC NEUROPATHY
     Dosage: 900 MG, QD
     Dates: start: 2020, end: 2020
  6. NORTHERA [Suspect]
     Active Substance: DROXIDOPA
     Dosage: 1200 MG, QD
     Dates: start: 2020

REACTIONS (6)
  - Blood pressure increased [Unknown]
  - Headache [Unknown]
  - Nausea [Unknown]
  - Peripheral swelling [Unknown]
  - Vomiting [Unknown]
  - Dizziness [Unknown]

NARRATIVE: CASE EVENT DATE: 2020
